FAERS Safety Report 9834321 (Version 1)
Quarter: 2014Q1

REPORT INFORMATION
  Report Type: Spontaneous
  Country: DE (occurrence: DE)
  Receive Date: 20140122
  Receipt Date: 20140122
  Transmission Date: 20141002
  Serious: Yes (Life-Threatening, Disabling)
  Sender: FDA-Public Use
  Company Number: DE-BAYER-2014-006693

PATIENT
  Age: 55 Year
  Sex: Male
  Weight: 94.79 kg

DRUGS (2)
  1. ASS [Suspect]
     Indication: MYOCARDIAL INFARCTION
     Dosage: 100 MG, QD
     Route: 048
     Dates: start: 20131216, end: 20131223
  2. BRILIQUE [Suspect]
     Indication: MYOCARDIAL INFARCTION
     Dosage: 90 MG, UNK
     Route: 048
     Dates: start: 20131216, end: 20131223

REACTIONS (2)
  - Cerebral haemorrhage [Not Recovered/Not Resolved]
  - Acute myocardial infarction [Not Recovered/Not Resolved]
